FAERS Safety Report 16122889 (Version 1)
Quarter: 2019Q1

REPORT INFORMATION
  Report Type: Spontaneous
  Country: FR (occurrence: FR)
  Receive Date: 20190327
  Receipt Date: 20190327
  Transmission Date: 20190418
  Serious: Yes (Hospitalization)
  Sender: FDA-Public Use
  Company Number: FR-TEVA-2019-FR-1030263

PATIENT
  Age: 66 Year
  Sex: Male

DRUGS (3)
  1. AMOXICILLINE [Suspect]
     Active Substance: AMOXICILLIN
     Indication: INFECTION
     Dosage: UNSPECIFIED
     Route: 048
     Dates: start: 20190207, end: 20190214
  2. PIVALONE (TIXOCORTOL PRIVALATE) [Suspect]
     Active Substance: TIXOCORTOL PIVALATE
     Indication: INFECTION
     Dosage: UNSPECIFIED
     Route: 045
     Dates: start: 20190207, end: 20190214
  3. POLERY [Suspect]
     Active Substance: CODEINE\SISYMBRIUM OFFICINALE WHOLE
     Indication: INFECTION
     Dosage: UNSPECIFIED
     Route: 048
     Dates: start: 20190207, end: 20190214

REACTIONS (1)
  - Vascular purpura [Not Recovered/Not Resolved]

NARRATIVE: CASE EVENT DATE: 20190215
